FAERS Safety Report 8244130-5 (Version None)
Quarter: 2012Q1

REPORT INFORMATION
  Report Type: 
  Country: None (occurrence: None)
  Receive Date: 20120329
  Receipt Date: 20120323
  Transmission Date: 20120608
  Serious: Yes (Hospitalization)
  Sender: FDA-Public Use
  Company Number: ES-PFIZER INC-2012076569

PATIENT
  Age: 74 Year
  Sex: Male

DRUGS (5)
  1. PANTOPRAZOLE [Concomitant]
     Dosage: 40 MG, 1X/DAY
     Route: 048
  2. PLAVIX [Concomitant]
     Dosage: 75 MG, 1X/DAY
     Route: 048
  3. TYGACIL [Suspect]
     Indication: GAZE PALSY
     Dosage: 50 MG, 2X/DAY
     Route: 042
     Dates: start: 20120222, end: 20120223
  4. PRAVASTATIN [Concomitant]
     Dosage: 20 MG, 1X/DAY
     Route: 048
  5. TAMSULOSIN HYDROCHLORIDE [Concomitant]
     Dosage: 0.4 MG, 1X/DAY
     Route: 048

REACTIONS (1)
  - URTICARIA [None]
